FAERS Safety Report 8375681-0 (Version None)
Quarter: 2012Q2

REPORT INFORMATION
  Report Type: 
  Country: None (occurrence: None)
  Receive Date: 20120522
  Receipt Date: 20120515
  Transmission Date: 20120825
  Serious: No
  Sender: FDA-Public Use
  Company Number: US-PFIZER INC-2012103723

PATIENT
  Sex: Female

DRUGS (1)
  1. METRONIDAZOLE [Suspect]
     Indication: VAGINITIS BACTERIAL
     Dosage: UNK

REACTIONS (1)
  - DRUG INEFFECTIVE [None]
